FAERS Safety Report 8554611 (Version 2)
Quarter: 2013Q2

REPORT INFORMATION
  Report Type: Spontaneous
  Country: US (occurrence: None)
  Receive Date: 20120327
  Receipt Date: 20120709
  Transmission Date: 20140414
  Serious: Yes (Other)
  Sender: FDA-Public Use
  Company Number: PHHY2011US30322

PATIENT
  Age: 72 Year
  Sex: Female

DRUGS (1)
  1. GLEEVEC [Suspect]
     Indication: SOFT TISSUE CANCER
     Dosage: ORAL, 400 MG, DAILY, ORAL
     Route: 048
     Dates: start: 2008

REACTIONS (3)
  - NEOPLASM RECURRENCE [None]
  - NAUSEA [None]
  - Vomiting [None]
